FAERS Safety Report 6222523-5 (Version None)
Quarter: 2009Q2

REPORT INFORMATION
  Report Type: 
  Country: None (occurrence: None)
  Receive Date: 20090609
  Receipt Date: 20090609
  Transmission Date: 20091009
  Serious: No
  Sender: FDA-Public Use
  Company Number: None

PATIENT
  Age: 77 Year
  Sex: Male
  Weight: 83.9154 kg

DRUGS (2)
  1. ADVAIR DISKUS 250/50 [Suspect]
     Indication: CHRONIC OBSTRUCTIVE PULMONARY DISEASE
     Dosage: 1 DOSE TWICE DAILY PO
     Route: 048
     Dates: start: 20050101, end: 20090608
  2. ADVAIR DISKUS 250/50 [Suspect]
     Indication: EMPHYSEMA
     Dosage: 1 DOSE TWICE DAILY PO
     Route: 048
     Dates: start: 20050101, end: 20090608

REACTIONS (1)
  - TOOTH FRACTURE [None]
